FAERS Safety Report 7780998-4 (Version None)
Quarter: 2011Q3

REPORT INFORMATION
  Report Type: 
  Country: None (occurrence: None)
  Receive Date: 20110927
  Receipt Date: 20110916
  Transmission Date: 20111222
  Serious: Yes (Other)
  Sender: FDA-Public Use
  Company Number: PHFR2011GB05417

PATIENT
  Sex: Male

DRUGS (2)
  1. CLOZAPINE [Suspect]
     Indication: SCHIZOPHRENIA
     Dosage: 200 MG, BID
     Route: 048
     Dates: start: 20110825
  2. HALOPERIDOL [Suspect]

REACTIONS (6)
  - URINARY INCONTINENCE [None]
  - SOMNOLENCE [None]
  - SALIVARY HYPERSECRETION [None]
  - ABDOMINAL PAIN LOWER [None]
  - CONFUSIONAL STATE [None]
  - URINARY TRACT INFECTION [None]
